FAERS Safety Report 7287600-9 (Version None)
Quarter: 2011Q1

REPORT INFORMATION
  Report Type: 
  Country: None (occurrence: None)
  Receive Date: 20110211
  Receipt Date: 20110202
  Transmission Date: 20110831
  Serious: Yes (Other)
  Sender: FDA-Public Use
  Company Number: US-SANOFI-AVENTIS-2010SA074832

PATIENT
  Age: 72 Year
  Sex: Female
  Weight: 55.45 kg

DRUGS (12)
  1. MULTAQ [Suspect]
     Indication: ATRIAL FIBRILLATION
     Route: 048
     Dates: start: 20100813
  2. MULTAQ [Suspect]
     Route: 048
     Dates: start: 20101201, end: 20110102
  3. MULTAQ [Suspect]
     Route: 048
     Dates: start: 20101201, end: 20110102
  4. VITAMIN D [Concomitant]
  5. FOLIC ACID [Concomitant]
  6. MULTAQ [Suspect]
     Route: 048
     Dates: start: 20100813
  7. LEXAPRO [Concomitant]
     Indication: STRESS
  8. LEVOTHROID [Concomitant]
  9. BENICAR [Concomitant]
  10. COUMADIN [Concomitant]
  11. VITAMIN B COMPLEX [Concomitant]
  12. ASPIRIN [Concomitant]

REACTIONS (8)
  - HEART RATE IRREGULAR [None]
  - DERMATITIS [None]
  - DRUG ERUPTION [None]
  - ERYTHEMA [None]
  - SKIN PLAQUE [None]
  - ATRIAL FIBRILLATION [None]
  - UNDERDOSE [None]
  - RASH [None]
